FAERS Safety Report 13707954 (Version 4)
Quarter: 2022Q3

REPORT INFORMATION
  Report Type: Spontaneous
  Country: AU (occurrence: AU)
  Receive Date: 20170630
  Receipt Date: 20220630
  Transmission Date: 20221027
  Serious: Yes (Death, Other)
  Sender: FDA-Public Use
  Company Number: PHHY2017AU094965

PATIENT
  Age: 57 Year
  Sex: Female

DRUGS (6)
  1. ZYKADIA [Suspect]
     Active Substance: CERITINIB
     Indication: Non-small cell lung cancer
     Dosage: UNK
     Route: 065
     Dates: start: 201312
  2. ZYKADIA [Suspect]
     Active Substance: CERITINIB
     Dosage: 300 MG, QD
     Route: 065
     Dates: end: 201404
  3. PEMETREXED [Suspect]
     Active Substance: PEMETREXED
     Indication: Non-small cell lung cancer
     Dosage: UNK
     Route: 065
     Dates: start: 201404
  4. GEMCITABINE [Concomitant]
     Active Substance: GEMCITABINE
     Indication: Product used for unknown indication
     Dosage: 3 CYCLES
     Route: 065
     Dates: start: 20120724
  5. CARBOPLATIN [Concomitant]
     Active Substance: CARBOPLATIN
     Indication: Product used for unknown indication
     Dosage: 3 CYCLES
     Route: 065
     Dates: start: 20120724
  6. CRIZOTINIB [Concomitant]
     Active Substance: CRIZOTINIB
     Indication: Non-small cell lung cancer
     Dosage: 250 MG, BID
     Route: 065
     Dates: start: 201209

REACTIONS (12)
  - Death [Fatal]
  - Lung infiltration malignant [Not Recovered/Not Resolved]
  - Non-small cell lung cancer [Unknown]
  - Malignant neoplasm progression [Unknown]
  - Infection [Not Recovered/Not Resolved]
  - Gastrointestinal toxicity [Unknown]
  - Dyspnoea [Not Recovered/Not Resolved]
  - General physical health deterioration [Unknown]
  - Weight decreased [Unknown]
  - Decreased appetite [Unknown]
  - Fatigue [Unknown]
  - Nausea [Not Recovered/Not Resolved]

NARRATIVE: CASE EVENT DATE: 20131201
